FAERS Safety Report 7185786-8 (Version None)
Quarter: 2010Q4

REPORT INFORMATION
  Report Type: 
  Country: None (occurrence: None)
  Receive Date: 20101222
  Receipt Date: 20100609
  Transmission Date: 20110411
  Serious: No
  Sender: FDA-Public Use
  Company Number: US-AMGEN-KDL417384

PATIENT

DRUGS (7)
  1. ENBREL [Suspect]
     Indication: PRODUCT USED FOR UNKNOWN INDICATION
     Dosage: 50 MG, QWK
     Route: 058
  2. DICLOFENAC SODIUM/MISOPROSTOL [Concomitant]
     Dosage: 75 MG, UNK
  3. TRAMADOL HYDROCHLORIDE W/ACETAMINOPHEN [Concomitant]
     Dosage: 325 MG, UNK
  4. METHOTREXATE [Concomitant]
     Dosage: 2.5 MG, UNK
  5. FOLIC ACID [Concomitant]
     Dosage: 1 MG, UNK
  6. ESOMEPRAZOLE MAGNESIUM [Concomitant]
     Dosage: 40 MG, UNK
  7. IRON [Concomitant]
     Dosage: 28 MG, UNK

REACTIONS (3)
  - DIARRHOEA [None]
  - INJECTION SITE HAEMATOMA [None]
  - NAUSEA [None]
